FAERS Safety Report 9142568 (Version 1)
Quarter: 2013Q1

REPORT INFORMATION
  Report Type: Spontaneous
  Country: BR (occurrence: BR)
  Receive Date: 20130306
  Receipt Date: 20130306
  Transmission Date: 20140127
  Serious: Yes (Other)
  Sender: FDA-Public Use
  Company Number: BR-ABBOTT-13X-020-1056069-00

PATIENT
  Age: 32 Year
  Sex: Male
  Weight: 50 kg

DRUGS (2)
  1. DEPAKENE [Suspect]
     Indication: PETIT MAL EPILEPSY
     Route: 048
     Dates: start: 2011
  2. DEPAKENE [Suspect]
     Route: 048

REACTIONS (6)
  - Syncope [Recovered/Resolved]
  - Syncope [Recovered/Resolved]
  - Petit mal epilepsy [Recovered/Resolved]
  - Petit mal epilepsy [Recovered/Resolved]
  - Palpitations [Recovered/Resolved]
  - Fall [Unknown]
